FAERS Safety Report 8909421 (Version 1)
Quarter: 2012Q4

REPORT INFORMATION
  Report Type: 
  Country: CH (occurrence: CH)
  Receive Date: 20121115
  Receipt Date: 20121115
  Transmission Date: 20130627
  Serious: Yes (Other)
  Sender: FDA-Public Use
  Company Number: CH-AMGEN-CHESP2012060682

PATIENT
  Sex: Female

DRUGS (1)
  1. PROLIA [Suspect]
     Indication: BONE LOSS
     Dosage: 60 mg, UNK
     Route: 058

REACTIONS (1)
  - Primary sequestrum [Recovered/Resolved]
